FAERS Safety Report 19204307 (Version 1)
Quarter: 2021Q2

REPORT INFORMATION
  Report Type: Spontaneous
  Country: CA (occurrence: CA)
  Receive Date: 20210503
  Receipt Date: 20210503
  Transmission Date: 20210717
  Serious: Yes (Other)
  Sender: FDA-Public Use
  Company Number: CA-JNJFOC-20210447291

PATIENT
  Age: 77 Year
  Sex: Male
  Weight: 60 kg

DRUGS (12)
  1. ESBRIET [Suspect]
     Active Substance: PIRFENIDONE
     Indication: IDIOPATHIC PULMONARY FIBROSIS
     Route: 048
  2. PRIMIDONE. [Concomitant]
     Active Substance: PRIMIDONE
     Indication: TREMOR
     Route: 065
  3. WARFARIN [Concomitant]
     Active Substance: WARFARIN
     Indication: DIABETES MELLITUS
     Route: 065
  4. TYLENOL [Suspect]
     Active Substance: ACETAMINOPHEN
     Indication: SLEEP DISORDER
     Route: 065
  5. GLICLAZIDE [Concomitant]
     Active Substance: GLICLAZIDE
     Indication: BLOOD CHOLESTEROL
     Route: 065
  6. METFORMIN [Concomitant]
     Active Substance: METFORMIN HYDROCHLORIDE
     Indication: DIABETES MELLITUS
     Route: 065
  7. ESBRIET [Suspect]
     Active Substance: PIRFENIDONE
     Route: 048
  8. ESBRIET [Suspect]
     Active Substance: PIRFENIDONE
     Route: 048
  9. ESBRIET [Suspect]
     Active Substance: PIRFENIDONE
     Route: 048
  10. TRIAMCINOLONE ACETONIDE. [Concomitant]
     Active Substance: TRIAMCINOLONE ACETONIDE
     Indication: PRURITUS
     Dosage: DOSAGE FORM SUSPENSION INTRAARTICULAR
     Route: 065
  11. CYANOCOBALAMIN. [Concomitant]
     Active Substance: CYANOCOBALAMIN
     Indication: PRODUCT USED FOR UNKNOWN INDICATION
     Route: 065
  12. ESBRIET [Suspect]
     Active Substance: PIRFENIDONE
     Route: 048

REACTIONS (18)
  - Blood count abnormal [Not Recovered/Not Resolved]
  - Decreased appetite [Not Recovered/Not Resolved]
  - Rash [Not Recovered/Not Resolved]
  - Abdominal discomfort [Not Recovered/Not Resolved]
  - Musculoskeletal stiffness [Not Recovered/Not Resolved]
  - Fatigue [Not Recovered/Not Resolved]
  - Photosensitivity reaction [Not Recovered/Not Resolved]
  - Pruritus [Not Recovered/Not Resolved]
  - Arthralgia [Not Recovered/Not Resolved]
  - Gastrointestinal disorder [Not Recovered/Not Resolved]
  - Hyperhidrosis [Not Recovered/Not Resolved]
  - Asthenia [Not Recovered/Not Resolved]
  - Insomnia [Not Recovered/Not Resolved]
  - Plasma cell myeloma [Not Recovered/Not Resolved]
  - Bone pain [Not Recovered/Not Resolved]
  - Diarrhoea [Not Recovered/Not Resolved]
  - Pain [Not Recovered/Not Resolved]
  - Weight decreased [Not Recovered/Not Resolved]
